FAERS Safety Report 6317939-2 (Version None)
Quarter: 2009Q3

REPORT INFORMATION
  Report Type: 
  Country: None (occurrence: None)
  Receive Date: 20090821
  Receipt Date: 20090814
  Transmission Date: 20100115
  Serious: Yes (Other)
  Sender: FDA-Public Use
  Company Number: US-JNJFOC-20090805271

PATIENT
  Age: 18 Year
  Sex: Female

DRUGS (1)
  1. NUCYNTA [Suspect]
     Indication: PROCEDURAL PAIN
     Route: 065

REACTIONS (4)
  - DREAMY STATE [None]
  - FATIGUE [None]
  - HALLUCINATION [None]
  - PRURITUS [None]
